FAERS Safety Report 4414524-4 (Version None)
Quarter: 2004Q2

REPORT INFORMATION
  Report Type: 
  Country: None (occurrence: None)
  Receive Date: 20040630
  Receipt Date: 20030515
  Transmission Date: 20050107
  Serious: Yes (Hospitalization)
  Sender: FDA-Public Use
  Company Number: 2003016011

PATIENT
  Sex: Female
  Weight: 52.1637 kg

DRUGS (5)
  1. ZOLOFT [Suspect]
     Indication: DEPRESSION
     Dosage: 25 MG (DAILY), ORAL
     Route: 048
     Dates: start: 20030317, end: 20030326
  2. ENALAPRIL MALEATE [Suspect]
     Indication: HYPERTENSION
     Dosage: 20 MG, ORAL
     Route: 048
     Dates: end: 20030301
  3. LORAZEPAM [Concomitant]
  4. INDAPAMIDE [Concomitant]
  5. CLONAZEPAM [Concomitant]

REACTIONS (4)
  - ATAXIA [None]
  - CONFUSIONAL STATE [None]
  - HYPONATRAEMIA [None]
  - NAUSEA [None]
